FAERS Safety Report 25834096 (Version 3)
Quarter: 2025Q4

REPORT INFORMATION
  Report Type: Spontaneous
  Country: EU (occurrence: EU)
  Receive Date: 20250923
  Receipt Date: 20251215
  Transmission Date: 20260117
  Serious: Yes (Other)
  Sender: BRISTOL-MYERS SQUIBB COMPANY
  Company Number: EU-BRISTOL-MYERS SQUIBB COMPANY-2025-121360

PATIENT
  Age: 71 Year
  Sex: Male
  Weight: 87 kg

DRUGS (9)
  1. APIXABAN [Suspect]
     Active Substance: APIXABAN
     Indication: Deep vein thrombosis
     Dosage: 5 MILLIGRAMS, ORAL, 2 EVERY 1 DAY
     Route: 048
     Dates: start: 20240325, end: 20250730
  2. APIXABAN [Suspect]
     Active Substance: APIXABAN
     Route: 048
     Dates: start: 20250805
  3. AVELUMAB [Suspect]
     Active Substance: AVELUMAB
     Indication: Transitional cell carcinoma
     Dosage: 800 MILLIGRAMS, INTRAVENOUS (NOT OTHERWISE SPECIFIED), 1 EVERY 2 WEEKS
     Route: 042
     Dates: start: 20240418, end: 20250808
  4. AVELUMAB [Suspect]
     Active Substance: AVELUMAB
     Dosage: 800 MILLIGRAMS, INTRAVENOUS (NOT OTHERWISE SPECIFIED), 1 EVERY 2 WEEKS
     Route: 042
     Dates: start: 20240418, end: 20250808
  5. AVELUMAB [Suspect]
     Active Substance: AVELUMAB
     Dosage: 800 MILLIGRAMS, INTRAVENOUS (NOT OTHERWISE SPECIFIED), 1 EVERY 2 WEEKS
     Route: 042
     Dates: start: 20240418, end: 20250808
  6. AVELUMAB [Suspect]
     Active Substance: AVELUMAB
     Dosage: 800 MILLIGRAMS, INTRAVENOUS (NOT OTHERWISE SPECIFIED), 1 EVERY 2 WEEKS
     Route: 042
     Dates: start: 20240418, end: 20250808
  7. ATORVASTATIN [Concomitant]
     Active Substance: ATORVASTATIN
     Indication: Dyslipidaemia
     Route: 048
     Dates: start: 20190615
  8. CHOLECALCIFEROL [Concomitant]
     Active Substance: CHOLECALCIFEROL
     Indication: Vitamin D deficiency
     Route: 048
     Dates: start: 20240115
  9. LEVOTHYROXINE [Concomitant]
     Active Substance: LEVOTHYROXINE
     Indication: Hypothyroidism
     Dosage: 150 UG, 1X/DAY
     Route: 048
     Dates: start: 20241004

REACTIONS (1)
  - Parietal lobe stroke [Recovered/Resolved]

NARRATIVE: CASE EVENT DATE: 20250811
